FAERS Safety Report 12327040 (Version 1)
Quarter: 2016Q2

REPORT INFORMATION
  Report Type: Spontaneous
  Country: US (occurrence: None)
  Receive Date: 20160502
  Receipt Date: 20160502
  Transmission Date: 20160815
  Serious: No
  Sender: FDA-Public Use
  Company Number: None

PATIENT
  Age: 59 Year
  Sex: Female

DRUGS (8)
  1. CARDIZEM [Concomitant]
     Active Substance: DILTIAZEM HYDROCHLORIDE
  2. PRILOSEC [Concomitant]
     Active Substance: OMEPRAZOLE MAGNESIUM
  3. PROBIOTIC [Concomitant]
     Active Substance: PROBIOTICS NOS
  4. SODIUM CHLORIDE NEB [Concomitant]
  5. MAXIPIME [Concomitant]
     Active Substance: CEFEPIME HYDROCHLORIDE
  6. ACETYLCYST [Concomitant]
  7. RASUVO [Suspect]
     Active Substance: METHOTREXATE SODIUM
     Indication: BRONCHIECTASIS
     Dosage: 15MG/0.3ML QWK INJ
     Dates: start: 201603
  8. LASIK [Concomitant]
     Active Substance: FUROSEMIDE\POTASSIUM CHLORIDE

REACTIONS (1)
  - Surgery [None]
